FAERS Safety Report 23125256 (Version 1)
Quarter: 2023Q4

REPORT INFORMATION
  Report Type: Spontaneous
  Country: US (occurrence: US)
  Receive Date: 20231030
  Receipt Date: 20231030
  Transmission Date: 20240110
  Serious: Yes (Life-Threatening, Hospitalization, Other)
  Sender: FDA-Public Use
  Company Number: US-SUN PHARMACEUTICAL INDUSTRIES LTD-2023R1-414933

PATIENT
  Age: 47 Year
  Sex: Female

DRUGS (3)
  1. GEMCITABINE [Suspect]
     Active Substance: GEMCITABINE
     Indication: Chemotherapy
     Dosage: 900 MILLIGRAM/SQ. METER
     Route: 065
  2. PACLITAXEL [Suspect]
     Active Substance: PACLITAXEL
     Indication: Chemotherapy
     Dosage: 100 MILLIGRAM/SQ. METER
     Route: 065
  3. RIVAROXABAN [Suspect]
     Active Substance: RIVAROXABAN
     Indication: Deep vein thrombosis
     Dosage: 20 MILLIGRAM, DAILY
     Route: 065

REACTIONS (8)
  - Disseminated intravascular coagulation [Unknown]
  - Hypotension [Unknown]
  - Petechiae [Unknown]
  - Tachycardia [Unknown]
  - Anaemia [Unknown]
  - Disease recurrence [Unknown]
  - Impaired quality of life [Unknown]
  - Thrombocytopenia [Unknown]
